FAERS Safety Report 20818701 (Version 1)
Quarter: 2022Q2

REPORT INFORMATION
  Report Type: Spontaneous
  Country: US (occurrence: US)
  Receive Date: 20220512
  Receipt Date: 20220512
  Transmission Date: 20220721
  Serious: No
  Sender: FDA-Public Use
  Company Number: US-PFIZER INC-202200149923

PATIENT
  Age: 85 Year
  Sex: Female
  Weight: 65.77 kg

DRUGS (2)
  1. XELJANZ XR [Suspect]
     Active Substance: TOFACITINIB CITRATE
     Indication: Rheumatoid arthritis
     Dosage: 11 MG
  2. TYLENOL [Concomitant]
     Active Substance: ACETAMINOPHEN
     Dosage: UNK

REACTIONS (7)
  - Product dose omission issue [Unknown]
  - Pain [Not Recovered/Not Resolved]
  - Memory impairment [Unknown]
  - Sleep disorder [Unknown]
  - Arthralgia [Unknown]
  - Hand deformity [Unknown]
  - Foot deformity [Unknown]

NARRATIVE: CASE EVENT DATE: 20211201
